FAERS Safety Report 4854382-7 (Version None)
Quarter: 2005Q4

REPORT INFORMATION
  Report Type: 
  Country: None (occurrence: None)
  Receive Date: 20051215
  Receipt Date: 20050610
  Transmission Date: 20060501
  Serious: Yes (Other)
  Sender: FDA-Public Use
  Company Number: US-BRISTOL-MYERS SQUIBB COMPANY-13000211

PATIENT
  Sex: Male

DRUGS (1)
  1. KENALOG [Suspect]

REACTIONS (2)
  - ANAPHYLACTIC REACTION [None]
  - FUNGAL INFECTION [None]
